FAERS Safety Report 5282034-0 (Version None)
Quarter: 2007Q1

REPORT INFORMATION
  Report Type: 
  Country: None (occurrence: None)
  Receive Date: 20070330
  Receipt Date: 20070323
  Transmission Date: 20070707
  Serious: Yes (Death)
  Sender: FDA-Public Use
  Company Number: JP-MERCK-0703USA04911

PATIENT
  Age: 84 Year
  Sex: Male

DRUGS (4)
  1. HYZAAR [Suspect]
     Indication: HYPERTENSION
     Route: 048
     Dates: start: 20070223, end: 20070316
  2. ASPIRIN [Concomitant]
     Route: 048
  3. SELBEX [Concomitant]
     Route: 048
  4. SIGMART [Concomitant]
     Route: 048

REACTIONS (1)
  - SUDDEN DEATH [None]
